FAERS Safety Report 22612714 (Version 7)
Quarter: 2023Q4

REPORT INFORMATION
  Report Type: Report from Study
  Country: MX (occurrence: MX)
  Receive Date: 20230617
  Receipt Date: 20231229
  Transmission Date: 20240110
  Serious: Yes (Hospitalization)
  Sender: FDA-Public Use
  Company Number: MX-002147023-NVSC2023MX138617

PATIENT
  Age: 30 Year
  Sex: Female
  Weight: 84 kg

DRUGS (11)
  1. GILENYA [Suspect]
     Active Substance: FINGOLIMOD HYDROCHLORIDE
     Indication: Multiple sclerosis
     Dosage: 1 DOSAGE FORM, QD, (0.5 MG)
     Route: 048
     Dates: start: 20230529
  2. GILENYA [Suspect]
     Active Substance: FINGOLIMOD HYDROCHLORIDE
     Dosage: 0.5 MG, QD, BY MOUTH
     Route: 048
     Dates: start: 202306
  3. GILENYA [Suspect]
     Active Substance: FINGOLIMOD HYDROCHLORIDE
     Dosage: 0.5 MG, QD, BY MOUTH
     Route: 048
     Dates: start: 20230601
  4. ESOMEPRAZOLE [Concomitant]
     Active Substance: ESOMEPRAZOLE
     Indication: Prophylaxis
     Dosage: UNK
     Route: 065
  5. ESOMEPRAZOLE [Concomitant]
     Active Substance: ESOMEPRAZOLE
     Indication: Hiatus hernia
     Dosage: UNK,1 CAP, 3 OR 4 TIMES DURING THE  WEEK
     Route: 048
     Dates: start: 2020
  6. RIOPAN [Concomitant]
     Indication: Product used for unknown indication
     Dosage: UNK
     Route: 065
  7. ARAVA [Concomitant]
     Active Substance: LEFLUNOMIDE
     Indication: Rheumatoid arthritis
     Dosage: 1 DOSAGE FORM, QD
     Route: 048
     Dates: start: 2020
  8. PREDNISONE [Concomitant]
     Active Substance: PREDNISONE
     Indication: Rheumatoid arthritis
     Dosage: 0.5 DOSAGE FORM, QD
     Route: 048
     Dates: start: 2020
  9. HYDROXYCHLOROQUINE [Concomitant]
     Active Substance: HYDROXYCHLOROQUINE
     Indication: Rheumatoid arthritis
     Dosage: 1 DOSAGE FORM, QD
     Route: 048
     Dates: start: 2020
  10. FLUNARIZINE [Concomitant]
     Active Substance: FLUNARIZINE
     Indication: Migraine
     Dosage: 0.5 DOSAGE FORM, QD
     Route: 048
  11. FLUNARIZINE [Concomitant]
     Active Substance: FLUNARIZINE
     Dosage: 5 MG,1 TAB EVERY 3RD DAY
     Route: 048

REACTIONS (14)
  - Abdominal pain upper [Not Recovered/Not Resolved]
  - Rhinitis [Recovered/Resolved]
  - Oropharyngeal pain [Recovered/Resolved]
  - Cough [Recovering/Resolving]
  - Alopecia [Not Recovered/Not Resolved]
  - Sensory loss [Recovered/Resolved]
  - Hyperventilation [Recovering/Resolving]
  - Rhinitis allergic [Not Recovered/Not Resolved]
  - Fatigue [Not Recovered/Not Resolved]
  - Nausea [Recovered/Resolved]
  - Thirst [Recovered/Resolved]
  - Nausea [Unknown]
  - Pain in extremity [Not Recovered/Not Resolved]
  - Mobility decreased [Not Recovered/Not Resolved]

NARRATIVE: CASE EVENT DATE: 20230601
